FAERS Safety Report 16567152 (Version 1)
Quarter: 2019Q3

REPORT INFORMATION
  Report Type: Spontaneous
  Country: US (occurrence: US)
  Receive Date: 20190712
  Receipt Date: 20190712
  Transmission Date: 20191004
  Serious: No
  Sender: FDA-Public Use
  Company Number: US-MYLANLABS-2019M1058677

PATIENT
  Age: 47 Year
  Sex: Female

DRUGS (1)
  1. EMSAM [Suspect]
     Active Substance: SELEGILINE
     Indication: MAJOR DEPRESSION
     Dosage: UNK
     Route: 062
     Dates: start: 20190617

REACTIONS (3)
  - Application site vesicles [Not Recovered/Not Resolved]
  - Product adhesion issue [Not Recovered/Not Resolved]
  - Wrong technique in product usage process [Not Recovered/Not Resolved]

NARRATIVE: CASE EVENT DATE: 2019
